FAERS Safety Report 7790131-0 (Version None)
Quarter: 2011Q3

REPORT INFORMATION
  Report Type: 
  Country: None (occurrence: None)
  Receive Date: 20110930
  Receipt Date: 20100812
  Transmission Date: 20111222
  Serious: No
  Sender: FDA-Public Use
  Company Number: US-ASTRAZENECA-2010SE37984

PATIENT
  Age: 67 Year
  Sex: Female
  Weight: 58.1 kg

DRUGS (8)
  1. ARIMIDEX [Suspect]
     Indication: BREAST CANCER
     Route: 048
  2. ZYAC(2) [Concomitant]
     Indication: HYPERTENSION
  3. KLOR-CON [Concomitant]
     Indication: HYPOKALAEMIA
  4. CENTRUM SILVER [Concomitant]
     Indication: NUTRITIONAL SUPPORT
  5. FISH OIL [Concomitant]
  6. DYNACIRC CR [Concomitant]
  7. CALTRATE PLUS D [Concomitant]
     Indication: CALCIUM DEFICIENCY
  8. ASPIRIN [Concomitant]

REACTIONS (2)
  - ARTHRALGIA [None]
  - BLOOD POTASSIUM DECREASED [None]
